FAERS Safety Report 26136858 (Version 1)
Quarter: 2025Q4

REPORT INFORMATION
  Report Type: Spontaneous
  Country: US (occurrence: None)
  Receive Date: 20251209
  Receipt Date: 20251209
  Transmission Date: 20260117
  Serious: Yes (Other)
  Sender: FDA-CTU
  Company Number: None

PATIENT
  Age: 39 Year
  Sex: Female
  Weight: 86 kg

DRUGS (8)
  1. INFED [Suspect]
     Active Substance: IRON DEXTRAN
     Indication: Iron deficiency anaemia
     Dosage: IRON DEFICIENCY ANEMIA
     Route: 042
     Dates: start: 20251204, end: 20251204
  2. Bisoprolol 10mg-hydrochlorothiazide 6.25 mg [Concomitant]
     Dosage: FREQUENCY : DAILY;
     Route: 048
  3. B-12 1,000 mcg [Concomitant]
     Dosage: FREQUENCY : DAILY;
     Route: 048
  4. Ferrous Sulfate 325 mg [Concomitant]
     Dosage: FREQUENCY : DAILY;
     Route: 048
  5. PANTOPRAZOLE SODIUM [Concomitant]
     Active Substance: PANTOPRAZOLE SODIUM
     Dosage: FREQUENCY : DAILY;
     Route: 048
  6. SERTRALINE [Concomitant]
     Active Substance: SERTRALINE HYDROCHLORIDE
     Dosage: FREQUENCY : DAILY;
     Route: 048
  7. Ubrelvy 50 mg PRN migraines [Concomitant]
     Route: 048
  8. XARELTO [Concomitant]
     Active Substance: RIVAROXABAN
     Dosage: FREQUENCY : DAILY;
     Route: 048

REACTIONS (8)
  - Nonspecific reaction [None]
  - Hypertension [None]
  - Back pain [None]
  - Chest discomfort [None]
  - Nausea [None]
  - Flushing [None]
  - Abdominal pain [None]
  - Chest discomfort [None]

NARRATIVE: CASE EVENT DATE: 20251204
